FAERS Safety Report 5570832-5 (Version None)
Quarter: 2007Q4

REPORT INFORMATION
  Report Type: 
  Country: None (occurrence: None)
  Receive Date: 20071221
  Receipt Date: 20071212
  Transmission Date: 20080405
  Serious: Yes (Hospitalization)
  Sender: FDA-Public Use
  Company Number: US-ELI_LILLY_AND_COMPANY-US200708001063

PATIENT
  Sex: Female
  Weight: 113.38 kg

DRUGS (4)
  1. ZYPREXA [Suspect]
     Dosage: 2.5 MG, UNK
     Dates: start: 19981005, end: 20050831
  2. ZYPREXA [Suspect]
     Dosage: 20 MG, UNK
     Dates: start: 19981005, end: 20050831
  3. DEPAKOTE [Concomitant]
     Dates: start: 19981005, end: 20040518
  4. LITHIUM CARBONATE [Concomitant]
     Dates: start: 19970313

REACTIONS (4)
  - CARDIAC DISORDER [None]
  - GALLBLADDER OPERATION [None]
  - OBESITY [None]
  - RENAL DISORDER [None]
